FAERS Safety Report 4848571-5 (Version None)
Quarter: 2005Q4

REPORT INFORMATION
  Report Type: 
  Country: None (occurrence: None)
  Receive Date: 20051208
  Receipt Date: 20051125
  Transmission Date: 20060501
  Serious: Yes (Other)
  Sender: FDA-Public Use
  Company Number: JP-AVENTIS-200513554JP

PATIENT
  Age: 52 Year
  Sex: Female

DRUGS (6)
  1. AMARYL [Suspect]
     Route: 048
     Dates: start: 20051021, end: 20051023
  2. AMARYL [Suspect]
     Route: 048
     Dates: start: 20051024, end: 20051126
  3. ZITHROMAC [Concomitant]
     Indication: NASOPHARYNGITIS
     Dosage: DOSE: 2TABLETS
     Route: 048
  4. DASEN [Concomitant]
     Indication: NASOPHARYNGITIS
     Route: 048
  5. TRANSAMIN [Concomitant]
     Indication: NASOPHARYNGITIS
     Route: 048
  6. ACTOS [Concomitant]

REACTIONS (5)
  - ACCIDENTAL OVERDOSE [None]
  - ALOPECIA [None]
  - DRUG EFFECT DECREASED [None]
  - GLUCOSE URINE PRESENT [None]
  - NASOPHARYNGITIS [None]
